FAERS Safety Report 23237424 (Version 2)
Quarter: 2024Q1

REPORT INFORMATION
  Report Type: Spontaneous
  Country: US (occurrence: US)
  Receive Date: 20231128
  Receipt Date: 20240117
  Transmission Date: 20240410
  Serious: No
  Sender: FDA-Public Use
  Company Number: US-INCYTE CORPORATION-2023IN011717

PATIENT

DRUGS (3)
  1. OPZELURA [Suspect]
     Active Substance: RUXOLITINIB PHOSPHATE
     Indication: Dermatitis atopic
     Dosage: UNK, BID
     Route: 061
     Dates: start: 20230501
  2. TACROLIMUS [Concomitant]
     Active Substance: TACROLIMUS
     Indication: Product used for unknown indication
     Dosage: UNK, BID
     Route: 065
  3. VTAMA [Concomitant]
     Active Substance: TAPINAROF
     Indication: Product used for unknown indication
     Route: 065

REACTIONS (1)
  - No adverse event [Unknown]
